FAERS Safety Report 7991276-2 (Version None)
Quarter: 2011Q4

REPORT INFORMATION
  Report Type: 
  Country: None (occurrence: None)
  Receive Date: 20111219
  Receipt Date: 20111206
  Transmission Date: 20120403
  Serious: Yes (Hospitalization)
  Sender: FDA-Public Use
  Company Number: US-MERCK-1112USA00845

PATIENT
  Age: 40 Year
  Sex: Male
  Weight: 107 kg

DRUGS (16)
  1. MELOXICAM [Suspect]
     Route: 065
  2. GABAPENTIN [Concomitant]
     Dosage: ON THE DAY OF SURGERY
     Route: 065
  3. TAMSULOSIN HYDROCHLORIDE [Concomitant]
     Route: 065
  4. LIDOCAINE [Concomitant]
     Indication: MAINTENANCE OF ANAESTHESIA
     Route: 065
  5. SUFENTANIL [Concomitant]
     Indication: MAINTENANCE OF ANAESTHESIA
     Route: 065
  6. GABAPENTIN [Concomitant]
     Route: 065
  7. KETAMINE HYDROCHLORIDE [Concomitant]
     Indication: INDUCTION OF ANAESTHESIA
     Route: 065
  8. SUFENTANIL [Concomitant]
     Indication: INDUCTION OF ANAESTHESIA
     Route: 065
  9. VECURONIUM BROMIDE [Concomitant]
     Indication: INDUCTION OF ANAESTHESIA
     Route: 065
  10. DEXMEDETOMIDINE HYDROCHLORIDE [Suspect]
     Indication: MAINTENANCE OF ANAESTHESIA
     Dosage: 0.5 MCG/KG/HR WITHOUT A BOLUS
     Route: 065
  11. ACETAMINOPHEN AND HYDROCODONE BITARTRATE [Concomitant]
     Route: 065
  12. COZAAR [Suspect]
     Route: 048
  13. PROPOFOL [Concomitant]
     Indication: INDUCTION OF ANAESTHESIA
     Route: 065
  14. CARISOPRODOL [Concomitant]
     Route: 065
  15. MIDAZOLAM [Concomitant]
     Dosage: ON THE DAY OF SURGERY
     Route: 065
  16. ISOFLURANE [Concomitant]
     Indication: MAINTENANCE OF ANAESTHESIA
     Route: 065

REACTIONS (2)
  - DRUG INTERACTION [None]
  - POLYURIA [None]
